FAERS Safety Report 18282075 (Version 1)
Quarter: 2020Q3

REPORT INFORMATION
  Report Type: Spontaneous
  Country: GB (occurrence: GB)
  Receive Date: 20200918
  Receipt Date: 20200918
  Transmission Date: 20201103
  Serious: Yes (Other)
  Sender: FDA-Public Use
  Company Number: GB-GLAXOSMITHKLINE-GB2020EME185075

PATIENT

DRUGS (1)
  1. AVAMYS [Suspect]
     Active Substance: FLUTICASONE FUROATE
     Indication: COUGH
     Dosage: UNK

REACTIONS (8)
  - Product use in unapproved indication [Unknown]
  - Drug ineffective for unapproved indication [Unknown]
  - Epistaxis [Not Recovered/Not Resolved]
  - Neck injury [Unknown]
  - Cough [Unknown]
  - Condition aggravated [Unknown]
  - Syncope [Unknown]
  - Rhinorrhoea [Unknown]
